FAERS Safety Report 6936566-7 (Version None)
Quarter: 2010Q3

REPORT INFORMATION
  Report Type: 
  Country: None (occurrence: None)
  Receive Date: 20100823
  Receipt Date: 20100818
  Transmission Date: 20110219
  Serious: Yes (Other)
  Sender: FDA-Public Use
  Company Number: DE-SANOFI-AVENTIS-2010SA049124

PATIENT
  Sex: Male

DRUGS (1)
  1. MULTAQ [Suspect]
     Indication: ATRIAL FIBRILLATION
     Route: 065

REACTIONS (4)
  - HEPATIC CIRRHOSIS [None]
  - LIVER FUNCTION TEST ABNORMAL [None]
  - PRURITUS [None]
  - RASH [None]
